FAERS Safety Report 11149370 (Version 1)
Quarter: 2015Q2

REPORT INFORMATION
  Report Type: Spontaneous
  Country: US (occurrence: US)
  Receive Date: 20150529
  Receipt Date: 20150529
  Transmission Date: 20150821
  Serious: No
  Sender: FDA-Public Use
  Company Number: US-ELI_LILLY_AND_COMPANY-US201505001334

PATIENT
  Sex: Female

DRUGS (2)
  1. LANTUS [Concomitant]
     Active Substance: INSULIN GLARGINE
     Dosage: 40 U, UNKNOWN
     Route: 065
  2. HUMALOG MIX50/50 [Suspect]
     Active Substance: INSULIN LISPRO
     Indication: TYPE 2 DIABETES MELLITUS
     Dosage: 20 U, OTHER
     Route: 065

REACTIONS (7)
  - Thinking abnormal [Unknown]
  - Malaise [Unknown]
  - Blood glucose increased [Unknown]
  - Drug dose omission [Unknown]
  - Viral infection [Unknown]
  - Food poisoning [Unknown]
  - Nausea [Unknown]

NARRATIVE: CASE EVENT DATE: 20150503
